FAERS Safety Report 7265757-3 (Version None)
Quarter: 2011Q1

REPORT INFORMATION
  Report Type: 
  Country: None (occurrence: None)
  Receive Date: 20110120
  Receipt Date: 20110113
  Transmission Date: 20110831
  Serious: Yes (Hospitalization)
  Sender: FDA-Public Use
  Company Number: WAES 1101FRA00072

PATIENT
  Age: 39 Year
  Sex: Male

DRUGS (6)
  1. RITONAVIR [Concomitant]
  2. DARUNAVIR [Concomitant]
  3. ETRAVIRINE [Concomitant]
  4. TAB RALTEGRAVIR POTASSIUM [Suspect]
     Indication: HIV INFECTION
     Dosage: 400 MG/BID, PO
     Route: 048
     Dates: start: 20070813
  5. DIDANOSINE [Concomitant]
  6. LAMIVUDINE [Concomitant]

REACTIONS (1)
  - ANAL HAEMORRHAGE [None]
